FAERS Safety Report 19132339 (Version 1)
Quarter: 2021Q2

REPORT INFORMATION
  Report Type: Spontaneous
  Country: CY (occurrence: CY)
  Receive Date: 20210414
  Receipt Date: 20210414
  Transmission Date: 20210717
  Serious: Yes (Other)
  Sender: FDA-Public Use
  Company Number: CY-JNJFOC-20210423384

PATIENT
  Age: 60 Year
  Sex: Female

DRUGS (1)
  1. YONDELIS [Suspect]
     Active Substance: TRABECTEDIN
     Indication: SOFT TISSUE SARCOMA
     Dosage: 16TH CYCLE COMPLETED
     Route: 042
     Dates: start: 20191219

REACTIONS (3)
  - Thrombocytopenia [Unknown]
  - Myelosuppression [Unknown]
  - Neutropenia [Unknown]
